FAERS Safety Report 4945267-6 (Version None)
Quarter: 2006Q1

REPORT INFORMATION
  Report Type: 
  Country: None (occurrence: None)
  Receive Date: 20060117
  Receipt Date: 20050318
  Transmission Date: 20060701
  Serious: Yes (Other)
  Sender: FDA-Public Use
  Company Number: 399052

PATIENT
  Sex: Female

DRUGS (3)
  1. ROCEPHIN [Suspect]
     Dates: start: 20050308, end: 20050308
  2. AVELOX [Suspect]
     Dosage: 400 MG DAILY ORAL
     Route: 048
     Dates: start: 20050309
  3. KENALOG [Suspect]

REACTIONS (5)
  - ANAPHYLACTIC REACTION [None]
  - DYSPNOEA [None]
  - PARAESTHESIA [None]
  - PRURITUS [None]
  - THROAT TIGHTNESS [None]
